FAERS Safety Report 9106495 (Version 1)
Quarter: 2013Q1

REPORT INFORMATION
  Report Type: Spontaneous
  Country: US (occurrence: US)
  Receive Date: 20130221
  Receipt Date: 20130221
  Transmission Date: 20140127
  Serious: Yes (Hospitalization)
  Sender: FDA-Public Use
  Company Number: US-PFIZER INC-2013064824

PATIENT
  Age: 60 Year
  Sex: Female
  Weight: 83.45 kg

DRUGS (12)
  1. LIPITOR [Suspect]
     Indication: BLOOD CHOLESTEROL INCREASED
     Dosage: 40 MG, 1X/DAY
  2. TRAZODONE [Concomitant]
     Indication: SLEEP DISORDER
     Dosage: 50 MG, 1X/DAY
     Dates: start: 2004
  3. PRILOSEC [Concomitant]
     Indication: GASTROOESOPHAGEAL REFLUX DISEASE
     Dosage: 20 MG, 1X/DAY
     Dates: start: 2004
  4. FUROSEMIDE [Concomitant]
     Indication: FLUID IMBALANCE
     Dosage: 20 MG, 2X/DAY
     Dates: start: 2004
  5. LISINOPRIL [Concomitant]
     Dosage: 5 MG, 1X/DAY
     Dates: start: 2004
  6. FERROUS SULPHATE [Concomitant]
     Indication: IRON DEFICIENCY
     Dosage: 325 MG, 1X/DAY
     Dates: start: 201211
  7. METFORMIN [Concomitant]
     Indication: BLOOD GLUCOSE ABNORMAL
     Dosage: 500 MG, 1X/DAY
  8. GABAPENTIN [Concomitant]
     Indication: NEUROPATHY PERIPHERAL
     Dosage: 600 MG, 3X/DAY
  9. WARFARIN [Concomitant]
     Indication: ANTICOAGULANT THERAPY
     Dosage: UNK,EVERY OTHER DAY
     Dates: start: 201208
  10. METOPROLOL [Concomitant]
     Indication: CARDIAC DISORDER
     Dosage: 50 MG, 1X/DAY
     Dates: start: 2000
  11. PENTOXIFYLLINE [Concomitant]
     Indication: CARDIOVASCULAR DISORDER
     Dosage: 400 MG, 3X/DAY
  12. POTASSIUM CHLORIDE [Concomitant]
     Dosage: 20 MEQ, 2X/DAY
     Route: 048

REACTIONS (5)
  - Cellulitis [Unknown]
  - Weight decreased [Unknown]
  - Nasopharyngitis [Unknown]
  - Cough [Unknown]
  - Aphonia [Unknown]
